FAERS Safety Report 5197548-1 (Version None)
Quarter: 2006Q4

REPORT INFORMATION
  Report Type: 
  Country: None (occurrence: None)
  Receive Date: 20060926
  Receipt Date: 20060609
  Transmission Date: 20070319
  Serious: No
  Sender: FDA-Public Use
  Company Number: SP00889

PATIENT
  Age: 43 Year
  Sex: Female
  Weight: 68.9467 kg

DRUGS (4)
  1. XIFAXAN [Suspect]
     Indication: IRRITABLE BOWEL SYNDROME
     Dosage: 1200MG/TID, ORAL
     Route: 048
     Dates: start: 20060530, end: 20060608
  2. NIFEDICAL [Concomitant]
  3. ZYRTEC [Concomitant]
  4. ALLERGY SHOTS [Concomitant]

REACTIONS (2)
  - DRUG INEFFECTIVE [None]
  - PHARMACEUTICAL PRODUCT COMPLAINT [None]
